FAERS Safety Report 6315901-7 (Version None)
Quarter: 2009Q3

REPORT INFORMATION
  Report Type: 
  Country: None (occurrence: None)
  Receive Date: 20090820
  Receipt Date: 20090810
  Transmission Date: 20100115
  Serious: Yes (Other)
  Sender: FDA-Public Use
  Company Number: US-JNJFOC-20090707274

PATIENT
  Sex: Female
  Weight: 51.26 kg

DRUGS (10)
  1. REMICADE [Suspect]
     Indication: POLYMYOSITIS
     Route: 042
  2. AZATHIOPRINE [Suspect]
     Indication: DRUG USE FOR UNKNOWN INDICATION
  3. CALTRATE [Concomitant]
     Route: 048
  4. CRESTOR [Concomitant]
     Route: 048
  5. FOLVITE [Concomitant]
     Route: 048
  6. MULTIPLE VITAMIN [Concomitant]
     Route: 048
  7. METHOTREXATE [Concomitant]
     Route: 048
  8. PREDNISONE [Concomitant]
     Dosage: 17.5 MG X 2 WEEKS, 15 MG DAILY X 2 WEEKS, 12.5 MG X2 WEEKS, 10 MG X 2WEEKS, THEN 10 MG DAILY
     Route: 048
  9. PREDNISONE [Concomitant]
     Route: 048
  10. RESTORIL [Concomitant]
     Route: 048

REACTIONS (1)
  - POLYMYOSITIS [None]
